FAERS Safety Report 6140190-6 (Version None)
Quarter: 2009Q2

REPORT INFORMATION
  Report Type: 
  Country: None (occurrence: None)
  Receive Date: 20090401
  Receipt Date: 20090325
  Transmission Date: 20091009
  Serious: Yes (Death)
  Sender: FDA-Public Use
  Company Number: JP-SANOFI-SYNTHELABO-F01200900291

PATIENT
  Sex: Male
  Weight: 65 kg

DRUGS (3)
  1. PANALDINE [Concomitant]
     Dosage: 100 MG
     Route: 065
     Dates: end: 20061114
  2. SIMVASTATIN [Concomitant]
     Dosage: 10 MG
     Route: 065
     Dates: start: 20061115, end: 20071121
  3. CLOPIDOGREL [Suspect]
     Indication: CEREBRAL INFARCTION
     Dosage: 75 MG
     Route: 048
     Dates: start: 20061115, end: 20071121

REACTIONS (1)
  - DEATH [None]
